FAERS Safety Report 4937217-3 (Version None)
Quarter: 2006Q1

REPORT INFORMATION
  Report Type: 
  Country: None (occurrence: None)
  Receive Date: 20060307
  Receipt Date: 20060307
  Transmission Date: 20060701
  Serious: Yes (Other)
  Sender: FDA-Public Use
  Company Number: None

PATIENT
  Age: 60 Year
  Sex: Female
  Weight: 74.8435 kg

DRUGS (2)
  1. MIRAPEX [Suspect]
     Indication: RESTLESS LEGS SYNDROME
     Dates: start: 20010103, end: 20051109
  2. REQUIP [Suspect]
     Indication: ADVERSE DRUG REACTION
     Dates: start: 20051020, end: 20051109

REACTIONS (6)
  - ABNORMAL BEHAVIOUR [None]
  - CARPAL TUNNEL SYNDROME [None]
  - ECONOMIC PROBLEM [None]
  - GAMBLING [None]
  - OBSESSIVE-COMPULSIVE DISORDER [None]
  - PAIN [None]
